FAERS Safety Report 5302873-7 (Version None)
Quarter: 2007Q2

REPORT INFORMATION
  Report Type: 
  Country: None (occurrence: None)
  Receive Date: 20070419
  Receipt Date: 20070419
  Transmission Date: 20071010
  Serious: No
  Sender: FDA-Public Use
  Company Number: None

PATIENT
  Age: 78 Year
  Sex: Male
  Weight: 83 kg

DRUGS (1)
  1. AMBIEN [Suspect]
     Indication: SLEEP DISORDER
     Dosage: 5MG QHS PO
     Route: 048
     Dates: start: 20070207, end: 20070207

REACTIONS (2)
  - DELIRIUM [None]
  - REFUSAL OF TREATMENT BY PATIENT [None]
